FAERS Safety Report 6149921-2 (Version None)
Quarter: 2009Q2

REPORT INFORMATION
  Report Type: 
  Country: None (occurrence: None)
  Receive Date: 20090409
  Receipt Date: 20090407
  Transmission Date: 20091009
  Serious: Yes (Hospitalization)
  Sender: FDA-Public Use
  Company Number: A0752731A

PATIENT
  Age: 67 Year
  Sex: Female
  Weight: 122.7 kg

DRUGS (17)
  1. NICODERM CQ [Suspect]
     Indication: SMOKING CESSATION THERAPY
     Dosage: 21MG UNKNOWN
     Route: 062
     Dates: start: 20081015, end: 20081018
  2. DOCUSATE [Concomitant]
  3. ACTONEL [Concomitant]
  4. NEXIUM [Concomitant]
     Dosage: 40MG PER DAY
  5. SENNA [Concomitant]
  6. SILVER SULFADIAZINE [Concomitant]
  7. ACETAMINOPHEN [Concomitant]
  8. ALPRAZOLAM [Concomitant]
  9. APAP WITH CODEINE [Concomitant]
  10. SOMA [Concomitant]
     Dosage: 350MG THREE TIMES PER DAY
  11. PREVACID [Concomitant]
     Dosage: 30MG AS REQUIRED
  12. LIPITOR [Concomitant]
  13. CYMBALTA [Concomitant]
     Dosage: 60MG PER DAY
  14. ASPIRIN [Concomitant]
     Dosage: 81MG PER DAY
  15. CALCIUM [Concomitant]
     Dosage: 1200MG AT NIGHT
  16. VITAMIN E [Concomitant]
  17. ANESTHESIA [Concomitant]

REACTIONS (4)
  - BLOOD PRESSURE INCREASED [None]
  - BRONCHOSPASM [None]
  - HEART RATE INCREASED [None]
  - TACHYCARDIA [None]
